FAERS Safety Report 7192237-6 (Version None)
Quarter: 2010Q4

REPORT INFORMATION
  Report Type: 
  Country: None (occurrence: None)
  Receive Date: 20101223
  Receipt Date: 20101214
  Transmission Date: 20110411
  Serious: Yes (Other)
  Sender: FDA-Public Use
  Company Number: US-JNJFOC-20101206462

PATIENT
  Sex: Male
  Weight: 112.04 kg

DRUGS (2)
  1. INVEGA SUSTENNA [Suspect]
     Indication: SCHIZOAFFECTIVE DISORDER
     Route: 030
  2. INVEGA SUSTENNA [Suspect]
     Route: 030

REACTIONS (4)
  - DYSPNOEA [None]
  - NASAL CONGESTION [None]
  - OEDEMA PERIPHERAL [None]
  - SEDATION [None]
